FAERS Safety Report 15469277 (Version 1)
Quarter: 2018Q4

REPORT INFORMATION
  Report Type: Spontaneous
  Country: PL (occurrence: PL)
  Receive Date: 20181005
  Receipt Date: 20181005
  Transmission Date: 20190205
  Serious: Yes (Death, Hospitalization, Other)
  Sender: FDA-Public Use
  Company Number: PL-EXELIXIS-CABO-18016222

PATIENT
  Sex: Male

DRUGS (1)
  1. CABOMETYX [Suspect]
     Active Substance: CABOZANTINIB S-MALATE
     Indication: RENAL CELL CARCINOMA
     Dosage: 60 MG, QD

REACTIONS (4)
  - Death [Fatal]
  - Blood creatinine increased [Unknown]
  - Stomatitis [Unknown]
  - Urinary retention [Unknown]

NARRATIVE: CASE EVENT DATE: 20180923
